FAERS Safety Report 9982901 (Version 2)
Quarter: 2014Q2

REPORT INFORMATION
  Report Type: Report from Study
  Country: US (occurrence: US)
  Receive Date: 20140307
  Receipt Date: 20140609
  Transmission Date: 20141212
  Serious: Yes (Hospitalization)
  Sender: FDA-Public Use
  Company Number: US-ABBVIE-13P-163-1181199-00

PATIENT
  Age: 29 Year
  Sex: Male
  Weight: 57.66 kg

DRUGS (24)
  1. HUMIRA [Suspect]
     Indication: CROHN^S DISEASE
     Route: 058
     Dates: start: 201210
  2. IMODIUM AD [Concomitant]
     Indication: DIARRHOEA
  3. PREDNISONE [Concomitant]
     Indication: CROHN^S DISEASE
  4. PENTASA [Concomitant]
     Indication: CROHN^S DISEASE
  5. VITAMIN B12 [Concomitant]
     Indication: VITAMIN SUPPLEMENTATION
  6. CIPROFLOXACIN [Concomitant]
     Indication: CROHN^S DISEASE
  7. CALTRATE PLUS-D [Concomitant]
     Indication: MINERAL SUPPLEMENTATION
  8. POTASSIUM [Concomitant]
     Indication: HYPOKALAEMIA
  9. ZINC [Concomitant]
     Indication: VITAMIN SUPPLEMENTATION
  10. MULTIVITAMINS [Concomitant]
     Indication: VITAMIN SUPPLEMENTATION
  11. IRON [Concomitant]
     Indication: IRON DEFICIENCY
  12. FOLIC ACID [Concomitant]
     Indication: VITAMIN SUPPLEMENTATION
  13. PROZAC [Concomitant]
     Indication: DEPRESSION
  14. ABILIFY [Concomitant]
     Indication: DEPRESSION
  15. LAMICTAL [Concomitant]
     Indication: DEPRESSION
  16. APRISO [Concomitant]
     Indication: CROHN^S DISEASE
  17. ENTOCORT EC [Concomitant]
     Indication: CROHN^S DISEASE
  18. LORTAB [Concomitant]
     Indication: PAIN
  19. SLOW IRON [Concomitant]
     Indication: PRODUCT USED FOR UNKNOWN INDICATION
  20. LOPERAMIDE [Concomitant]
     Indication: PRODUCT USED FOR UNKNOWN INDICATION
  21. CODEINE [Concomitant]
     Indication: PRODUCT USED FOR UNKNOWN INDICATION
  22. DOXYCYCLINE [Concomitant]
     Indication: PRODUCT USED FOR UNKNOWN INDICATION
  23. POTASSIUM CHLORIDE [Concomitant]
     Indication: PRODUCT USED FOR UNKNOWN INDICATION
  24. HYDROCODONE [Concomitant]
     Indication: PRODUCT USED FOR UNKNOWN INDICATION

REACTIONS (6)
  - Small intestinal stenosis [Recovered/Resolved]
  - Small intestinal obstruction [Recovered/Resolved]
  - Abdominal pain [Recovered/Resolved]
  - Abdominal pain [Not Recovered/Not Resolved]
  - Crohn^s disease [Unknown]
  - Crohn^s disease [Unknown]
